FAERS Safety Report 7824134-4 (Version None)
Quarter: 2011Q4

REPORT INFORMATION
  Report Type: 
  Country: None (occurrence: None)
  Receive Date: 20111019
  Receipt Date: 20111017
  Transmission Date: 20120403
  Serious: Yes (Other)
  Sender: FDA-Public Use
  Company Number: US-PFIZER INC-2011249356

PATIENT
  Sex: Male
  Weight: 86.168 kg

DRUGS (6)
  1. CHANTIX [Suspect]
     Indication: SMOKING CESSATION THERAPY
     Dosage: 0.5 MG, DAILY
     Route: 048
     Dates: start: 20110901, end: 20110101
  2. LAMICTAL [Concomitant]
     Indication: BIPOLAR DISORDER
     Dosage: 100 MG, 2X/DAY
  3. CHANTIX [Suspect]
     Dosage: 1 MG, 2X/DAY
     Route: 048
     Dates: start: 20110101
  4. TRILEPTAL [Concomitant]
     Indication: BIPOLAR DISORDER
     Dosage: 300 MG, 2X/DAY
  5. WELLBUTRIN XL [Concomitant]
     Indication: BIPOLAR DISORDER
     Dosage: 150 MG, DAILY
     Route: 048
  6. KLONOPIN [Concomitant]
     Indication: ANXIETY
     Dosage: 1 MG, DAILY
     Route: 048

REACTIONS (6)
  - SELF-INJURIOUS IDEATION [None]
  - ANXIETY [None]
  - FEELING ABNORMAL [None]
  - CRYING [None]
  - IRRITABILITY [None]
  - AGITATION [None]
